FAERS Safety Report 8439675-9 (Version None)
Quarter: 2012Q2

REPORT INFORMATION
  Report Type: 
  Country: None (occurrence: None)
  Receive Date: 20120615
  Receipt Date: 20120611
  Transmission Date: 20120825
  Serious: No
  Sender: FDA-Public Use
  Company Number: US-PFIZER INC-2012140566

PATIENT
  Sex: Female
  Weight: 62 kg

DRUGS (5)
  1. FLECTOR [Suspect]
     Indication: INTERVERTEBRAL DISC PROTRUSION
     Dosage: UNK, 2X/DAY
     Route: 061
     Dates: start: 20090101
  2. FLECTOR [Suspect]
  3. FLECTOR [Suspect]
     Indication: NECK PAIN
  4. FLECTOR [Suspect]
     Indication: BACK PAIN
  5. CORTISONE [Concomitant]
     Indication: PAIN
     Dosage: UNK

REACTIONS (1)
  - FIBROMYALGIA [None]
